FAERS Safety Report 8390539-9 (Version None)
Quarter: 2012Q2

REPORT INFORMATION
  Report Type: 
  Country: None (occurrence: None)
  Receive Date: 20120529
  Receipt Date: 20120516
  Transmission Date: 20120825
  Serious: Yes (Hospitalization, Other)
  Sender: FDA-Public Use
  Company Number: FR-PFIZER INC-2012122352

PATIENT
  Sex: Male

DRUGS (3)
  1. CORDARONE [Suspect]
     Dosage: 200 MG, DAILY
     Route: 064
     Dates: start: 20111001
  2. CORDARONE [Suspect]
     Indication: HYPERTROPHIC CARDIOMYOPATHY
     Dosage: 200 MG, DAILY
     Route: 064
     Dates: start: 20110615, end: 20110820
  3. ATENOLOL [Suspect]
     Indication: HYPERTROPHIC CARDIOMYOPATHY
     Dosage: 50 MG, 2X/DAY
     Route: 064
     Dates: start: 20110615

REACTIONS (7)
  - FOETAL GROWTH RESTRICTION [None]
  - ULTRASOUND DOPPLER ABNORMAL [None]
  - FOETAL ARRHYTHMIA [None]
  - MATERNAL EXPOSURE TIMING UNSPECIFIED [None]
  - HYPOGLYCAEMIA NEONATAL [None]
  - NEONATAL RESPIRATORY DISTRESS SYNDROME [None]
  - LOW BIRTH WEIGHT BABY [None]
